FAERS Safety Report 24993422 (Version 1)
Quarter: 2025Q1

REPORT INFORMATION
  Report Type: Spontaneous
  Country: US (occurrence: US)
  Receive Date: 20250221
  Receipt Date: 20250221
  Transmission Date: 20250408
  Serious: No
  Sender: Harrow Health
  Company Number: US-IMP-2025000128

PATIENT
  Age: 44 Year
  Sex: Female

DRUGS (2)
  1. VEVYE [Suspect]
     Active Substance: CYCLOSPORINE
     Indication: Product used for unknown indication
     Route: 047
  2. VEVYE [Suspect]
     Active Substance: CYCLOSPORINE
     Indication: Product used for unknown indication
     Route: 047
     Dates: start: 20250201

REACTIONS (3)
  - Eyelid margin crusting [Unknown]
  - Instillation site irritation [Unknown]
  - Instillation site pruritus [Unknown]

NARRATIVE: CASE EVENT DATE: 20250201
